FAERS Safety Report 5883348-3 (Version None)
Quarter: 2008Q3

REPORT INFORMATION
  Report Type: 
  Country: None (occurrence: None)
  Receive Date: 20080915
  Receipt Date: 20080909
  Transmission Date: 20090109
  Serious: Yes (Hospitalization)
  Sender: FDA-Public Use
  Company Number: FR-CELGENEUS-056-C5013-08041152

PATIENT
  Sex: Male

DRUGS (4)
  1. REVLIMID [Suspect]
     Indication: NON-HODGKIN'S LYMPHOMA
     Route: 048
     Dates: start: 20080204
  2. GRANOCYTE [Concomitant]
     Indication: NEUTROPENIA
     Route: 058
     Dates: start: 20080128
  3. GRANOCYTE [Concomitant]
     Indication: PROPHYLAXIS
  4. EPOIETIN ALPHA [Concomitant]
     Indication: ANAEMIA
     Route: 058
     Dates: start: 20080303

REACTIONS (1)
  - GENERAL PHYSICAL HEALTH DETERIORATION [None]
